FAERS Safety Report 5043697-8 (Version None)
Quarter: 2006Q2

REPORT INFORMATION
  Report Type: 
  Country: None (occurrence: None)
  Receive Date: 20060601
  Receipt Date: 20060127
  Transmission Date: 20061013
  Serious: No
  Sender: FDA-Public Use
  Company Number: 2006PV007748

PATIENT
  Age: 79 Year
  Sex: Male
  Weight: 95.2554 kg

DRUGS (2)
  1. BYETTA [Suspect]
     Indication: DIABETES MELLITUS NON-INSULIN-DEPENDENT
     Dosage: 5 MCG; BID; SC
     Route: 058
     Dates: start: 20051101
  2. METFORMIN HCL [Concomitant]

REACTIONS (9)
  - ABDOMINAL DISTENSION [None]
  - CONSTIPATION [None]
  - DECREASED APPETITE [None]
  - DYSPNOEA EXACERBATED [None]
  - ERUCTATION [None]
  - FEELING ABNORMAL [None]
  - MALAISE [None]
  - NAUSEA [None]
  - WEIGHT DECREASED [None]
